FAERS Safety Report 5564940-2 (Version None)
Quarter: 2007Q4

REPORT INFORMATION
  Report Type: 
  Country: None (occurrence: None)
  Receive Date: 20071218
  Receipt Date: 20071212
  Transmission Date: 20080405
  Serious: Yes (Other)
  Sender: FDA-Public Use
  Company Number: B0482241A

PATIENT
  Sex: Female
  Weight: 65 kg

DRUGS (10)
  1. VENTOLIN [Suspect]
     Indication: ASTHMA
     Route: 055
  2. SERETIDE [Suspect]
     Indication: ASTHMA
     Route: 055
  3. PROVERA [Concomitant]
  4. PREMARIN [Concomitant]
  5. VIBRAMYCIN [Concomitant]
  6. ZANTAC [Concomitant]
  7. LIPITOR [Concomitant]
  8. TRITACE [Concomitant]
  9. SPIRIVA [Concomitant]
     Route: 055
  10. NEXIUM [Concomitant]

REACTIONS (3)
  - CHEST DISCOMFORT [None]
  - HEADACHE [None]
  - PHARMACEUTICAL PRODUCT COMPLAINT [None]
